FAERS Safety Report 8421989-X (Version None)
Quarter: 2012Q2

REPORT INFORMATION
  Report Type: 
  Country: None (occurrence: None)
  Receive Date: 20120323
  Receipt Date: 20110307
  Transmission Date: 20120825
  Serious: Yes (Hospitalization)
  Sender: FDA-Public Use
  Company Number: 163-21880-11021514

PATIENT
  Age: 84 Year
  Sex: Female

DRUGS (4)
  1. AREDIA [Concomitant]
  2. REVLIMID [Suspect]
     Indication: MULTIPLE MYELOMA
     Dosage: 25 MG, DAILY FOR 21 DAYS, PO
     Route: 048
     Dates: start: 20110130, end: 20110209
  3. PROCRIT [Concomitant]
  4. DEXAMETHASONE [Concomitant]

REACTIONS (1)
  - RED BLOOD CELL COUNT DECREASED [None]
